FAERS Safety Report 11092392 (Version 2)
Quarter: 2015Q2

REPORT INFORMATION
  Report Type: Spontaneous
  Country: FI (occurrence: FI)
  Receive Date: 20150506
  Receipt Date: 20150618
  Transmission Date: 20150821
  Serious: Yes (Other)
  Sender: FDA-Public Use
  Company Number: FI-009507513-1504FIN024082

PATIENT
  Age: 51 Year
  Sex: Female

DRUGS (2)
  1. ARCOXIA [Suspect]
     Active Substance: ETORICOXIB
     Indication: TOOTHACHE
     Dosage: 120 MG, ONCE
     Route: 048
     Dates: start: 201504
  2. AERIUS [Concomitant]
     Active Substance: DESLORATADINE
     Indication: ALLERGY TO PLANTS
     Dosage: 5 MG, ONCE
     Route: 048
     Dates: start: 201504

REACTIONS (6)
  - Off label use [Unknown]
  - Dyspnoea [Unknown]
  - Pruritus [Unknown]
  - Urticaria [Unknown]
  - Oedema peripheral [Unknown]
  - Face oedema [Unknown]

NARRATIVE: CASE EVENT DATE: 201504
